FAERS Safety Report 5645811-X (Version None)
Quarter: 2008Q1

REPORT INFORMATION
  Report Type: 
  Country: None (occurrence: None)
  Receive Date: 20080229
  Receipt Date: 20080218
  Transmission Date: 20080703
  Serious: Yes (Other)
  Sender: FDA-Public Use
  Company Number: US-PFIZER INC-2008004601

PATIENT
  Sex: Male
  Weight: 83.9 kg

DRUGS (18)
  1. CHANTIX [Suspect]
     Indication: SMOKING CESSATION THERAPY
     Route: 048
     Dates: start: 20070410, end: 20070711
  2. ZIAC [Suspect]
     Indication: HYPERTENSION
     Route: 048
  3. GLUCOPHAGE [Concomitant]
     Route: 048
     Dates: start: 20071121
  4. GLUCOPHAGE [Concomitant]
     Dates: start: 20071211
  5. COZAAR [Concomitant]
     Route: 048
  6. ZYRTEC [Concomitant]
     Route: 048
  7. NASONEX [Concomitant]
     Route: 045
  8. CALCIUM WITH VITAMIN D [Concomitant]
  9. FOLIC ACID [Concomitant]
  10. SAW PALMETTO [Concomitant]
     Dosage: DAILY DOSE:1725MG
  11. ASCORBIC ACID [Concomitant]
  12. FISH OIL [Concomitant]
  13. VITAMIN CAP [Concomitant]
  14. FLAXSEED OIL [Concomitant]
  15. GLUCOTROL XL [Concomitant]
     Route: 048
  16. BISOPROLOL FUMARATE [Concomitant]
     Route: 048
  17. ZESTRIL [Concomitant]
     Route: 048
     Dates: start: 20070508, end: 20071113
  18. ZESTRIL [Concomitant]
     Route: 048
     Dates: start: 20070814, end: 20071113

REACTIONS (7)
  - BLOOD GLUCOSE INCREASED [None]
  - BLOOD PRESSURE INCREASED [None]
  - FATIGUE [None]
  - MUSCLE SPASMS [None]
  - NAUSEA [None]
  - POLYURIA [None]
  - VISION BLURRED [None]
